FAERS Safety Report 8125840-7 (Version None)
Quarter: 2012Q1

REPORT INFORMATION
  Report Type: 
  Country: None (occurrence: None)
  Receive Date: 20120209
  Receipt Date: 20120127
  Transmission Date: 20120608
  Serious: Yes (Hospitalization)
  Sender: FDA-Public Use
  Company Number: DE-MYLANLABS-2012S1002319

PATIENT
  Age: 65 Year
  Sex: Female

DRUGS (7)
  1. CYTARABINE [Suspect]
     Indication: ACUTE MYELOID LEUKAEMIA
     Route: 065
  2. IDARUBICIN HCL [Suspect]
     Indication: ACUTE MYELOID LEUKAEMIA
     Route: 065
  3. TRETINOIN [Suspect]
     Indication: ACUTE MYELOID LEUKAEMIA
     Route: 065
  4. MITOXANTRONE [Suspect]
     Indication: ACUTE MYELOID LEUKAEMIA
     Route: 065
  5. LEVOFLOXACIN [Concomitant]
     Indication: PROPHYLAXIS
     Dosage: 500 MG/DAY
     Route: 065
  6. PIPERACILLIN AND TAZOBACTAM [Concomitant]
     Indication: PYREXIA
     Dosage: 3X 4/0.5 G/DAY
     Route: 065
  7. GEMTUZUMAB OZOGAMICIN [Suspect]
     Indication: ACUTE MYELOID LEUKAEMIA
     Route: 065

REACTIONS (1)
  - ENTEROCOCCAL SEPSIS [None]
